FAERS Safety Report 5533124-6 (Version None)
Quarter: 2007Q4

REPORT INFORMATION
  Report Type: 
  Country: None (occurrence: None)
  Receive Date: 20071204
  Receipt Date: 20071128
  Transmission Date: 20080405
  Serious: Yes (Other)
  Sender: FDA-Public Use
  Company Number: US-AVENTIS-200718303US

PATIENT
  Age: 60 Year
  Sex: Female
  Weight: 95.9 kg

DRUGS (5)
  1. LANTUS [Suspect]
     Route: 051
  2. GLIPIZIDE [Concomitant]
     Dosage: DOSE: UNK
  3. METFORMIN HCL [Concomitant]
     Dosage: DOSE: UNK
  4. VYTORIN [Concomitant]
     Dosage: DOSE: UNK
  5. MICARDIS [Concomitant]
     Dosage: DOSE: UNK

REACTIONS (4)
  - BLOOD GLUCOSE DECREASED [None]
  - BLOOD GLUCOSE FLUCTUATION [None]
  - HUNGER [None]
  - WEIGHT INCREASED [None]
